FAERS Safety Report 18386764 (Version 1)
Quarter: 2020Q4

REPORT INFORMATION
  Report Type: Spontaneous
  Country: SI (occurrence: SI)
  Receive Date: 20201015
  Receipt Date: 20201015
  Transmission Date: 20210114
  Serious: Yes (Hospitalization, Other)
  Sender: FDA-Public Use
  Company Number: SI-AMGEN-SVNSP2020166421

PATIENT
  Age: 28 Year
  Sex: Female

DRUGS (5)
  1. PERSEN [MELISSA OFFICINALIS EXTRACT, MENTHA X PIPERITA EXTRACT, VALERIANA OFFICINALIS EXTRACT] [Suspect]
     Active Substance: HERBALS\MELISSA OFFICINALIS LEAF\PEPPERMINT EXTRACT\VALERIAN
     Indication: PRODUCT USED FOR UNKNOWN INDICATION
     Dosage: UNK
     Route: 065
  2. LEXAURIN [Suspect]
     Active Substance: BROMAZEPAM
     Indication: PRODUCT USED FOR UNKNOWN INDICATION
     Dosage: UNK
     Route: 065
  3. KVETIAPIN GENERA [Suspect]
     Active Substance: QUETIAPINE FUMARATE
     Indication: PRODUCT USED FOR UNKNOWN INDICATION
     Dosage: UNK
     Route: 065
  4. PROCORALAN [Suspect]
     Active Substance: IVABRADINE
     Indication: PRODUCT USED FOR UNKNOWN INDICATION
     Dosage: UNK
     Route: 065
  5. PROCORALAN [Suspect]
     Active Substance: IVABRADINE
     Dosage: 28 DF, ONE DOSE
     Route: 048

REACTIONS (5)
  - Intentional overdose [Recovering/Resolving]
  - Somnolence [Recovering/Resolving]
  - Suicide attempt [Recovering/Resolving]
  - Sinus bradycardia [Recovering/Resolving]
  - Pneumonia aspiration [Unknown]

NARRATIVE: CASE EVENT DATE: 202010
